FAERS Safety Report 16673281 (Version 1)
Quarter: 2019Q3

REPORT INFORMATION
  Report Type: Report from Study
  Country: GB (occurrence: GB)
  Receive Date: 20190806
  Receipt Date: 20190806
  Transmission Date: 20191004
  Serious: Yes (Hospitalization)
  Sender: FDA-Public Use
  Company Number: PHHY2019GB167152

PATIENT
  Age: 31 Year
  Sex: Female

DRUGS (1)
  1. COSENTYX [Suspect]
     Active Substance: SECUKINUMAB
     Indication: PSORIATIC ARTHROPATHY
     Dosage: 150 MG, QW
     Route: 065
     Dates: start: 20190708

REACTIONS (7)
  - Diarrhoea [Unknown]
  - Dehydration [Unknown]
  - Vomiting [Unknown]
  - Oropharyngeal pain [Unknown]
  - Vomiting [Recovered/Resolved]
  - Malaise [Unknown]
  - Nausea [Unknown]

NARRATIVE: CASE EVENT DATE: 20190708
